FAERS Safety Report 8480777-9 (Version None)
Quarter: 2012Q3

REPORT INFORMATION
  Report Type: 
  Country: None (occurrence: None)
  Receive Date: 20120702
  Receipt Date: 20120620
  Transmission Date: 20120928
  Serious: Yes (Hospitalization)
  Sender: FDA-Public Use
  Company Number: US-BAYER-2011-111884

PATIENT
  Age: 21 Year
  Sex: Female
  Weight: 90.703 kg

DRUGS (12)
  1. AZITHROMYCIN [Concomitant]
     Dosage: 250 MG, 2 TODAY THEN ONE DAILY FOR FOUR DAYS
     Route: 048
  2. PROVIGIL [Concomitant]
     Dosage: 200 MG,  OM
     Route: 048
  3. CLONAZEPAM [Concomitant]
     Dosage: 0.5 MG, HALF TO ONE TABLET 30 MINUTES BEFORE BEDTIME
     Route: 048
  4. YASMIN [Suspect]
     Indication: MENSTRUAL CYCLE MANAGEMENT
     Dosage: UNK
     Route: 048
     Dates: start: 20030101, end: 20080101
  5. EFFEXOR [Concomitant]
     Indication: SOMNOLENCE
     Dosage: 75 MG, TID
     Route: 048
     Dates: start: 20091203
  6. YASMIN [Suspect]
     Dosage: UNK
     Dates: start: 20080101
  7. DROSPIRENONE AND ETHINYL ESTRADIOL [Suspect]
     Indication: MENSTRUAL CYCLE MANAGEMENT
     Dosage: UNK
     Dates: start: 20030101, end: 20080101
  8. DROSPIRENONE AND ETHINYL ESTRADIOL [Suspect]
     Dosage: UNK
     Dates: start: 20080101
  9. GUAIFENESIN/CODEINE [Concomitant]
     Route: 048
  10. EFFEXOR [Concomitant]
     Indication: HEADACHE
     Dosage: 150 MG, UNK
     Route: 048
  11. RITALIN [Concomitant]
     Dosage: 5 MG, ONE TABLET UP TO TWICE A DAY
     Route: 048
  12. INHALERS [Concomitant]
     Dosage: UNK
     Route: 045

REACTIONS (8)
  - GALLBLADDER DISORDER [None]
  - INJURY [None]
  - PAIN [None]
  - CHOLECYSTITIS CHRONIC [None]
  - EMOTIONAL DISTRESS [None]
  - PSYCHOLOGICAL TRAUMA [None]
  - FEAR [None]
  - ANXIETY [None]
